FAERS Safety Report 9568592 (Version 2)
Quarter: 2013Q4

REPORT INFORMATION
  Report Type: Spontaneous
  Country: US (occurrence: US)
  Receive Date: 20130930
  Receipt Date: 20131127
  Transmission Date: 20140711
  Serious: Yes (Other)
  Sender: FDA-Public Use
  Company Number: US-AMGEN-USASP2013063181

PATIENT
  Age: 27 Year
  Sex: Female
  Weight: 49.89 kg

DRUGS (10)
  1. ENBREL [Suspect]
     Indication: PSORIASIS
     Dosage: 50 MG, ONCE A WEEK
     Route: 058
     Dates: start: 20130307
  2. CARBAMAZEPINE [Concomitant]
     Dosage: 100 MG, 60 UNITS FOR 30 DAYS
  3. SERTRALINE HCL [Concomitant]
     Dosage: 50 MG, 60 UNITS FOR 30 DAYS
  4. FORMOTEROL FUMARATE W/MOMETASONE FUROATE [Concomitant]
     Dosage: 2 PUFFS BID
  5. CLONAZEPAM [Concomitant]
     Dosage: 0.5 MG, DAILY
  6. QVAR [Concomitant]
     Dosage: 80 MUG, 1 PUFF TWICE PER DAY, 2 PUFFS IN THE MIDDLE OF THE DAY
  7. LORATADINE [Concomitant]
     Dosage: 10 MG, 1 TABLET DURING ALLERGY SEASON
  8. CLOBETASOL 0.05% [Concomitant]
     Dosage: UNK, TWICE DAILY AS NEEDED
  9. ALBUTEROL SULFATE [Concomitant]
     Indication: DYSPNOEA
     Dosage: (2.5 MG/3ML), EVERY 4 TO 6 HOURS AS NEEDED
  10. ALBUTEROL SULFATE [Concomitant]
     Indication: WHEEZING

REACTIONS (6)
  - Bipolar I disorder [Unknown]
  - Urinary tract infection [Unknown]
  - Generalised anxiety disorder [Unknown]
  - Tobacco abuse [Unknown]
  - Asthma [Unknown]
  - Psoriasis [Not Recovered/Not Resolved]
